FAERS Safety Report 6488116-X (Version None)
Quarter: 2009Q4

REPORT INFORMATION
  Report Type: 
  Country: None (occurrence: None)
  Receive Date: 20091210
  Receipt Date: 20091204
  Transmission Date: 20100525
  Serious: Yes (Hospitalization, Congenital Anomaly)
  Sender: FDA-Public Use
  Company Number: A0661740A

PATIENT
  Sex: Female

DRUGS (3)
  1. PAXIL [Suspect]
     Indication: ANXIETY
     Dosage: 40MG PER DAY
     Dates: start: 20000601, end: 20051201
  2. VITAMIN TAB [Concomitant]
  3. RHOGAM [Concomitant]
     Dates: start: 20020822

REACTIONS (31)
  - AORTA HYPOPLASIA [None]
  - ATRIAL SEPTAL DEFECT [None]
  - BLOOD PH DECREASED [None]
  - BODY HEIGHT BELOW NORMAL [None]
  - CARDIAC MURMUR [None]
  - COARCTATION OF THE AORTA [None]
  - CYANOSIS [None]
  - DRUG EXPOSURE DURING PREGNANCY [None]
  - EBSTEIN'S ANOMALY [None]
  - FAILURE TO THRIVE [None]
  - FEEDING DISORDER [None]
  - HYPERTENSION [None]
  - HYPOPHAGIA [None]
  - HYPOXIA [None]
  - LEFT VENTRICULAR HYPERTROPHY [None]
  - MATERNAL DRUGS AFFECTING FOETUS [None]
  - MITRAL VALVE INCOMPETENCE [None]
  - MULTIPLE CONGENITAL ABNORMALITIES [None]
  - NOSOCOMIAL INFECTION [None]
  - PATENT DUCTUS ARTERIOSUS [None]
  - PERICARDIAL EFFUSION [None]
  - PNEUMOTHORAX [None]
  - PULMONARY OEDEMA [None]
  - RESPIRATORY FAILURE [None]
  - ROTAVIRUS INFECTION [None]
  - SHONE COMPLEX [None]
  - STAPHYLOCOCCAL INFECTION [None]
  - TRICUSPID VALVE INCOMPETENCE [None]
  - UNDERWEIGHT [None]
  - URINARY TRACT INFECTION [None]
  - VENTRICULAR SEPTAL DEFECT [None]
